FAERS Safety Report 25581539 (Version 1)
Quarter: 2025Q3

REPORT INFORMATION
  Report Type: Spontaneous
  Country: US (occurrence: US)
  Receive Date: 20250719
  Receipt Date: 20250719
  Transmission Date: 20251020
  Serious: No
  Sender: NOVO NORDISK
  Company Number: US-NOVOPROD-1308173

PATIENT
  Sex: Male

DRUGS (5)
  1. WEGOVY [Suspect]
     Active Substance: SEMAGLUTIDE
     Indication: Cardiac disorder
     Dosage: 0.25 MG, QW
     Route: 058
     Dates: start: 20240824
  2. WEGOVY [Suspect]
     Active Substance: SEMAGLUTIDE
     Indication: Blood pressure measurement
  3. WEGOVY [Suspect]
     Active Substance: SEMAGLUTIDE
     Indication: Glucose tolerance impaired
  4. WEGOVY [Suspect]
     Active Substance: SEMAGLUTIDE
     Indication: Weight control
  5. CANNABIS SATIVA SUBSP. INDICA TOP [Concomitant]
     Active Substance: CANNABIS SATIVA SUBSP. INDICA TOP
     Indication: Product used for unknown indication

REACTIONS (3)
  - Frequent bowel movements [Recovered/Resolved]
  - Injection site haemorrhage [Recovered/Resolved]
  - Inappropriate schedule of product administration [Unknown]
